FAERS Safety Report 7692262-2 (Version None)
Quarter: 2011Q3

REPORT INFORMATION
  Report Type: 
  Country: None (occurrence: None)
  Receive Date: 20110818
  Receipt Date: 20110810
  Transmission Date: 20111222
  Serious: Yes (Hospitalization)
  Sender: FDA-Public Use
  Company Number: AR-ABBOTT-11P-007-0845850-00

PATIENT

DRUGS (4)
  1. ZEMPLAR [Suspect]
     Indication: HYPERPARATHYROIDISM SECONDARY
  2. CALCITRIOL [Concomitant]
     Indication: HYPERPARATHYROIDISM SECONDARY
  3. ZEMPLAR [Suspect]
     Indication: RENAL FAILURE CHRONIC
     Route: 048
  4. CALCITRIOL [Concomitant]
     Indication: RENAL FAILURE CHRONIC

REACTIONS (1)
  - ARTERIAL OCCLUSIVE DISEASE [None]
